FAERS Safety Report 24009001 (Version 1)
Quarter: 2024Q2

REPORT INFORMATION
  Report Type: Spontaneous
  Country: US (occurrence: US)
  Receive Date: 20240625
  Receipt Date: 20240625
  Transmission Date: 20240715
  Serious: Yes (Hospitalization)
  Sender: FDA-Public Use
  Company Number: US-MYLANLABS-2024M1055934

PATIENT
  Age: 34 Year
  Sex: Male

DRUGS (2)
  1. ZOLEDRONIC ACID [Suspect]
     Active Substance: ZOLEDRONIC ACID
     Indication: Mazabraud^s syndrome
     Dosage: UNK, (PATIENT RECEIVED ONE DOSE)
     Route: 042
  2. IBANDRONATE SODIUM [Suspect]
     Active Substance: IBANDRONATE SODIUM
     Indication: Mazabraud^s syndrome
     Dosage: UNK
     Route: 042

REACTIONS (2)
  - Acute phase reaction [Recovering/Resolving]
  - Off label use [Unknown]
